FAERS Safety Report 15334864 (Version 1)
Quarter: 2018Q3

REPORT INFORMATION
  Report Type: Spontaneous
  Country: FI (occurrence: FI)
  Receive Date: 20180830
  Receipt Date: 20180830
  Transmission Date: 20181010
  Serious: Yes (Other)
  Sender: FDA-Public Use
  Company Number: PHHY2018FI006829

PATIENT
  Age: 75 Year
  Sex: Female

DRUGS (4)
  1. FLECAINIDE [Suspect]
     Active Substance: FLECAINIDE
     Indication: ATRIAL FIBRILLATION
     Dosage: 200 MG, UNK
     Route: 065
  2. BISOPROLOL FUMARATE. [Suspect]
     Active Substance: BISOPROLOL FUMARATE
     Indication: ARRHYTHMIA PROPHYLAXIS
     Route: 065
  3. WARFARIN [Suspect]
     Active Substance: WARFARIN
     Indication: ARRHYTHMIA PROPHYLAXIS
     Route: 065
  4. FLECAINIDE [Suspect]
     Active Substance: FLECAINIDE
     Dosage: 100 MG, UNK
     Route: 065

REACTIONS (14)
  - Arrhythmia [Unknown]
  - Ventricular dyssynchrony [Unknown]
  - Heart sounds abnormal [Unknown]
  - Conduction disorder [Unknown]
  - Overdose [Unknown]
  - Therapy non-responder [Unknown]
  - Muscular weakness [Unknown]
  - Injury [Unknown]
  - Tachyarrhythmia [Recovered/Resolved]
  - Atrial fibrillation [Recovered/Resolved]
  - Bundle branch block left [Unknown]
  - Renal failure [Unknown]
  - Fall [Unknown]
  - Electrocardiogram QRS complex prolonged [Recovered/Resolved]
